FAERS Safety Report 7736292-0 (Version None)
Quarter: 2011Q3

REPORT INFORMATION
  Report Type: 
  Country: None (occurrence: None)
  Receive Date: 20110908
  Receipt Date: 20110830
  Transmission Date: 20111222
  Serious: Yes (Hospitalization)
  Sender: FDA-Public Use
  Company Number: JP-ASTRAZENECA-2011SE48806

PATIENT
  Age: 61 Year
  Sex: Male
  Weight: 53 kg

DRUGS (26)
  1. DEXTROMETHORPHAN HYDROBROMIDE [Concomitant]
     Indication: NASOPHARYNGITIS
     Dosage: DOSE UNKNOWN
     Route: 048
     Dates: start: 20110315, end: 20110322
  2. CLARITHROMYCIN [Concomitant]
     Indication: NASOPHARYNGITIS
     Dosage: DOSE UNKNOWN
     Route: 048
     Dates: start: 20110315, end: 20110322
  3. CLARITHROMYCIN [Concomitant]
     Indication: UPPER RESPIRATORY TRACT INFECTION
     Dosage: DOSE UNKNOWN
     Route: 048
     Dates: start: 20110315, end: 20110322
  4. MUCODYNE [Concomitant]
     Dosage: DOSE UNKNOWN
     Route: 048
     Dates: start: 20110411, end: 20110418
  5. NORVASC [Concomitant]
     Indication: HYPERTENSION
     Route: 048
  6. INFLUENZA HA VACCINE [Concomitant]
     Indication: ANTIVIRAL PROPHYLAXIS
     Route: 058
     Dates: start: 20101031, end: 20101031
  7. SINGULAIR [Concomitant]
     Dosage: DOSE UNKNOWN
     Route: 048
     Dates: start: 20110411, end: 20110418
  8. LOXONIN [Concomitant]
     Indication: PAIN PROPHYLAXIS
     Dosage: DOSE UNKNOWN, AS REQUIRED
     Route: 048
     Dates: start: 20101105, end: 20101112
  9. LEXOTAN [Concomitant]
     Indication: NEUROSIS
     Route: 048
  10. ASTOMIN [Concomitant]
     Indication: UPPER RESPIRATORY TRACT INFECTION
     Dosage: DOSE UNKNOWN
     Route: 048
     Dates: start: 20110615, end: 20110619
  11. LEVOFLOXACIN [Concomitant]
     Indication: UPPER RESPIRATORY TRACT INFECTION
     Dosage: DOSE UNKNOWN
     Route: 048
     Dates: start: 20110615, end: 20110619
  12. ALBUTEROL SULFATE [Concomitant]
     Indication: CHRONIC OBSTRUCTIVE PULMONARY DISEASE
     Dosage: DOSE UNKNOWN, AS REQUIRED
     Route: 055
     Dates: start: 20100601
  13. CLARITHROMYCIN [Concomitant]
     Dosage: DOSE UNKNOWN
     Route: 048
     Dates: start: 20110411, end: 20110418
  14. AMBROXOL HYDROCHLORIDE [Concomitant]
     Indication: UPPER RESPIRATORY TRACT INFECTION
     Dosage: DOSE UNKNOWN
     Route: 048
     Dates: start: 20110615, end: 20110619
  15. SYMBICORT [Suspect]
     Indication: CHRONIC OBSTRUCTIVE PULMONARY DISEASE
     Dosage: 160/4.5 UG TWO INHALATION TWO TIMES A DAY
     Route: 055
     Dates: start: 20101019, end: 20110811
  16. DEXTROMETHORPHAN HYDROBROMIDE [Concomitant]
     Dosage: DOSE UNKNOWN
     Route: 048
     Dates: start: 20110411, end: 20110418
  17. DEXTROMETHORPHAN HYDROBROMIDE [Concomitant]
     Dosage: DOSE UNKNOWN
     Route: 048
     Dates: start: 20110603, end: 20110608
  18. CLARITHROMYCIN [Concomitant]
     Dosage: DOSE UNKNOWN
     Route: 048
     Dates: start: 20110603, end: 20110608
  19. CLARITHROMYCIN [Concomitant]
     Dosage: DOSE UNKNOWN
     Route: 048
     Dates: start: 20110603, end: 20110608
  20. SINGULAIR [Concomitant]
     Indication: NASOPHARYNGITIS
     Dosage: DOSE UNKNOWN
     Route: 048
     Dates: start: 20110315, end: 20110322
  21. DEXTROMETHORPHAN HYDROBROMIDE [Concomitant]
     Indication: UPPER RESPIRATORY TRACT INFECTION
     Dosage: DOSE UNKNOWN
     Route: 048
     Dates: start: 20110315, end: 20110322
  22. DEXTROMETHORPHAN HYDROBROMIDE [Concomitant]
     Dosage: DOSE UNKNOWN
     Route: 048
     Dates: start: 20110411, end: 20110418
  23. CLARITHROMYCIN [Concomitant]
     Dosage: DOSE UNKNOWN
     Route: 048
     Dates: start: 20110411, end: 20110418
  24. MUCODYNE [Concomitant]
     Indication: NASOPHARYNGITIS
     Dosage: DOSE UNKNOWN
     Route: 048
     Dates: start: 20110315, end: 20110322
  25. SPIRIVA [Concomitant]
     Indication: CHRONIC OBSTRUCTIVE PULMONARY DISEASE
     Route: 055
     Dates: start: 20100928
  26. DEXTROMETHORPHAN HYDROBROMIDE [Concomitant]
     Dosage: DOSE UNKNOWN
     Route: 048
     Dates: start: 20110603, end: 20110608

REACTIONS (2)
  - CHRONIC OBSTRUCTIVE PULMONARY DISEASE [None]
  - PNEUMONIA [None]
